FAERS Safety Report 4782415-5 (Version None)
Quarter: 2005Q3

REPORT INFORMATION
  Report Type: 
  Country: None (occurrence: None)
  Receive Date: 20050929
  Receipt Date: 20040818
  Transmission Date: 20060218
  Serious: No
  Sender: FDA-Public Use
  Company Number: 380043

PATIENT
  Age: 53 Year
  Sex: Male

DRUGS (5)
  1. COREG [Suspect]
     Indication: DRUG USE FOR UNKNOWN INDICATION
     Dosage: 6.25MG PER DAY
     Route: 048
     Dates: start: 20040306, end: 20040601
  2. LIPITOR [Concomitant]
     Route: 048
  3. PAXIL [Concomitant]
     Route: 048
  4. ASPIRIN [Concomitant]
     Route: 048
  5. HYDROCHLOROTHIAZIDE [Concomitant]
     Route: 048

REACTIONS (2)
  - LICHENOID KERATOSIS [None]
  - PRURITUS [None]
